FAERS Safety Report 7282955-3 (Version None)
Quarter: 2010Q4

REPORT INFORMATION
  Report Type: 
  Country: None (occurrence: None)
  Receive Date: 20101221
  Receipt Date: 20100707
  Transmission Date: 20110411
  Serious: Yes (Hospitalization)
  Sender: FDA-Public Use
  Company Number: WAES 1007USA00678

PATIENT
  Age: 52 Year
  Sex: Female

DRUGS (10)
  1. JANUVIA [Suspect]
     Indication: TYPE 2 DIABETES MELLITUS
     Dosage: 50 MG/PO
     Route: 048
     Dates: end: 20100706
  2. CATAPRES [Concomitant]
  3. DARVOCET-N 100 [Concomitant]
  4. LUNESTA [Concomitant]
  5. NOVOLIN R [Concomitant]
  6. PREMARIN [Concomitant]
  7. CLONIDINE [Concomitant]
  8. INSULIN [Concomitant]
  9. LISINOPRIL [Concomitant]
  10. LORAZEPAM [Concomitant]

REACTIONS (1)
  - PANCREATITIS [None]
